FAERS Safety Report 7310130-2 (Version None)
Quarter: 2011Q1

REPORT INFORMATION
  Report Type: 
  Country: None (occurrence: None)
  Receive Date: 20110224
  Receipt Date: 20110215
  Transmission Date: 20110831
  Serious: Yes (Other)
  Sender: FDA-Public Use
  Company Number: US-PFIZER INC-2010130183

PATIENT
  Sex: Female
  Weight: 90.703 kg

DRUGS (1)
  1. XALATAN [Suspect]
     Indication: GLAUCOMA
     Dosage: 1 GTT, IN EACH EYE
     Route: 047

REACTIONS (3)
  - OCULAR HYPERAEMIA [None]
  - EYELID OEDEMA [None]
  - EYE DISCHARGE [None]
